FAERS Safety Report 7469073-6 (Version None)
Quarter: 2011Q2

REPORT INFORMATION
  Report Type: 
  Country: None (occurrence: None)
  Receive Date: 20110510
  Receipt Date: 20110502
  Transmission Date: 20111010
  Serious: Yes (Hospitalization)
  Sender: FDA-Public Use
  Company Number: IT-BAYER-2011-037532

PATIENT
  Age: 64 Year
  Sex: Male

DRUGS (1)
  1. NEXAVAR [Suspect]
     Indication: LYMPHOMA
     Dosage: DAILY DOSE 400 MG
     Route: 048
     Dates: start: 20110401, end: 20110423

REACTIONS (3)
  - OEDEMA PERIPHERAL [None]
  - OEDEMA [None]
  - FEELING HOT [None]
